FAERS Safety Report 4871938-6 (Version None)
Quarter: 2006Q1

REPORT INFORMATION
  Report Type: 
  Country: None (occurrence: None)
  Receive Date: 20060104
  Receipt Date: 20050629
  Transmission Date: 20060701
  Serious: Yes (Hospitalization, Disabling)
  Sender: FDA-Public Use
  Company Number: US-ROCHE-409297

PATIENT
  Age: 20 Year
  Sex: Male
  Weight: 88.5 kg

DRUGS (2)
  1. ACCUTANE [Suspect]
     Indication: ACNE
     Route: 048
     Dates: start: 19971231, end: 19980615
  2. ERYTHROMYCIN GEL [Concomitant]
     Indication: ACNE
     Route: 061
     Dates: start: 19971231

REACTIONS (30)
  - ABSCESS INTESTINAL [None]
  - ANAEMIA [None]
  - ANHEDONIA [None]
  - ANXIETY [None]
  - APPENDICITIS [None]
  - BLOOD GLUCOSE INCREASED [None]
  - BRONCHITIS [None]
  - CELLULITIS [None]
  - COLITIS [None]
  - COLONIC POLYP [None]
  - CROHN'S DISEASE [None]
  - DRY SKIN [None]
  - EAR PAIN [None]
  - GASTROINTESTINAL DISORDER [None]
  - GROIN PAIN [None]
  - INFLAMMATORY BOWEL DISEASE [None]
  - INJURY [None]
  - INTESTINAL HAEMORRHAGE [None]
  - LYMPHADENOPATHY [None]
  - LYMPHOCYTE COUNT DECREASED [None]
  - MELANOCYTIC NAEVUS [None]
  - MULTI-ORGAN DISORDER [None]
  - NEUTROPHIL COUNT INCREASED [None]
  - PAIN [None]
  - PERITONITIS [None]
  - POSTOPERATIVE FEVER [None]
  - RECTAL HAEMORRHAGE [None]
  - RENAL CYST [None]
  - STRESS [None]
  - WOUND INFECTION [None]
